FAERS Safety Report 6449378-8 (Version None)
Quarter: 2009Q4

REPORT INFORMATION
  Report Type: 
  Country: None (occurrence: None)
  Receive Date: 20091120
  Receipt Date: 20091103
  Transmission Date: 20100525
  Serious: Yes (Other)
  Sender: FDA-Public Use
  Company Number: ZA-ABBOTT-09P-143-0609543-01

PATIENT
  Sex: Female

DRUGS (4)
  1. RITONAVIR ORAL SOLUTION [Suspect]
     Indication: HIV INFECTION
     Route: 048
  2. ATAZANAVIR [Concomitant]
     Indication: HIV INFECTION
  3. STAVUDINE [Concomitant]
     Indication: HIV INFECTION
  4. LAMIVUDINE [Concomitant]
     Indication: HIV INFECTION

REACTIONS (1)
  - ELECTROCARDIOGRAM QT PROLONGED [None]
